FAERS Safety Report 16338426 (Version 1)
Quarter: 2019Q2

REPORT INFORMATION
  Report Type: Spontaneous
  Country: CA (occurrence: CA)
  Receive Date: 20190521
  Receipt Date: 20190521
  Transmission Date: 20190711
  Serious: Yes (Death, Hospitalization)
  Sender: FDA-Public Use
  Company Number: CA-CASPER PHARMA LLC-2019CAS000240

PATIENT
  Age: 50 Year
  Sex: Female

DRUGS (1)
  1. NEOMYCIN, POLYMYXIN, BACITRACIN, HC [Suspect]
     Active Substance: BACITRACIN ZINC\HYDROCORTISONE\NEOMYCIN SULFATE\POLYMYXIN B SULFATE
     Indication: SYSTEMIC LUPUS ERYTHEMATOSUS
     Dosage: 100 MILLIGRAM, TID
     Route: 042
     Dates: start: 19810323

REACTIONS (2)
  - Pancreatitis haemorrhagic [Fatal]
  - Product use in unapproved indication [Unknown]
